FAERS Safety Report 7606168-8 (Version None)
Quarter: 2011Q3

REPORT INFORMATION
  Report Type: 
  Country: None (occurrence: None)
  Receive Date: 20110712
  Receipt Date: 20110712
  Transmission Date: 20111222
  Serious: Yes (Other)
  Sender: FDA-Public Use
  Company Number: None

PATIENT
  Sex: Female
  Weight: 60.782 kg

DRUGS (2)
  1. CIPROFLOXACIN [Suspect]
     Indication: ABDOMINAL PAIN
     Dosage: 400MG Q12H IV DRIP
     Route: 041
     Dates: start: 20110708, end: 20110708
  2. CIPROFLOXACIN [Suspect]
     Indication: WHITE BLOOD CELL COUNT INCREASED
     Dosage: 400MG Q12H IV DRIP
     Route: 041
     Dates: start: 20110708, end: 20110708

REACTIONS (3)
  - INFUSION SITE PRURITUS [None]
  - BURNING SENSATION [None]
  - ERYTHEMA [None]
